FAERS Safety Report 5725533-7 (Version None)
Quarter: 2008Q2

REPORT INFORMATION
  Report Type: 
  Country: None (occurrence: None)
  Receive Date: 20080501
  Receipt Date: 20080422
  Transmission Date: 20081010
  Serious: Yes (Death, Other)
  Sender: FDA-Public Use
  Company Number: US-WYE-H03783908

PATIENT
  Sex: Female
  Weight: 89.89 kg

DRUGS (1)
  1. PREMPRO [Suspect]

REACTIONS (1)
  - BREAST CANCER [None]
